FAERS Safety Report 12413422 (Version 1)
Quarter: 2016Q2

REPORT INFORMATION
  Report Type: Spontaneous
  Country: JP (occurrence: JP)
  Receive Date: 20160527
  Receipt Date: 20160527
  Transmission Date: 20160815
  Serious: Yes (Other)
  Sender: FDA-Public Use
  Company Number: JP-MYLANLABS-2016M1021400

PATIENT

DRUGS (2)
  1. CARBOPLATIN. [Suspect]
     Active Substance: CARBOPLATIN
     Indication: VAGINAL ADENOCARCINOMA
     Dosage: UNK
     Route: 041
  2. PACLITAXEL. [Suspect]
     Active Substance: PACLITAXEL
     Indication: VAGINAL ADENOCARCINOMA
     Dosage: 180 MG/M2
     Route: 041

REACTIONS (1)
  - Toxic skin eruption [Recovered/Resolved]
